FAERS Safety Report 23275969 (Version 1)
Quarter: 2023Q4

REPORT INFORMATION
  Report Type: Spontaneous
  Country: US (occurrence: None)
  Receive Date: 20231207
  Receipt Date: 20231207
  Transmission Date: 20240109
  Serious: Yes (Death)
  Sender: FDA-Public Use
  Company Number: None

PATIENT
  Age: 59 Year
  Sex: Male

DRUGS (9)
  1. CYRAMZA [Suspect]
     Active Substance: RAMUCIRUMAB
     Indication: Rectal cancer
     Dosage: FREQUENCY : EVERY OTHER WEEK;?
     Route: 042
     Dates: start: 202210
  2. CYRAMZA [Suspect]
     Active Substance: RAMUCIRUMAB
     Indication: Metastases to lung
  3. CYRAMZA [Suspect]
     Active Substance: RAMUCIRUMAB
     Indication: Bone cancer
  4. CYRAMZA [Suspect]
     Active Substance: RAMUCIRUMAB
     Indication: Metastases to liver
  5. FLUOROURACIL [Suspect]
     Active Substance: FLUOROURACIL
     Indication: Product used for unknown indication
     Dosage: OTHER QUANTITY : 688MG+ 4,128MG;?FREQUENCY : EVERY OTHER WEEK;?
     Route: 042
     Dates: start: 202211
  6. LEUCOVORIN CALC [Concomitant]
  7. LONSURF [Concomitant]
     Active Substance: TIPIRACIL HYDROCHLORIDE\TRIFLURIDINE
  8. ZIRABEV [Concomitant]
     Active Substance: BEVACIZUMAB-BVZR
  9. IRINOTECAN HYDROCHLORIDE [Concomitant]
     Active Substance: IRINOTECAN HYDROCHLORIDE

REACTIONS (1)
  - Disease progression [None]

NARRATIVE: CASE EVENT DATE: 20231119
